FAERS Safety Report 5933858-5 (Version None)
Quarter: 2008Q4

REPORT INFORMATION
  Report Type: 
  Country: None (occurrence: None)
  Receive Date: 20081024
  Receipt Date: 20081021
  Transmission Date: 20090506
  Serious: Yes (Other)
  Sender: FDA-Public Use
  Company Number: 2008SP020559

PATIENT
  Age: 67 Year
  Sex: Female
  Weight: 56.6996 kg

DRUGS (2)
  1. CLARITIN-D 24 HOUR [Suspect]
     Indication: NASAL CONGESTION
     Dosage: 10 MG ONCE PO
     Route: 048
     Dates: start: 20080916
  2. CLARITIN-D 24 HOUR [Suspect]
     Indication: SINUS CONGESTION
     Dosage: 10 MG ONCE PO
     Route: 048
     Dates: start: 20080916

REACTIONS (2)
  - ABNORMAL DREAMS [None]
  - HALLUCINATION [None]
